FAERS Safety Report 20517665 (Version 5)
Quarter: 2022Q3

REPORT INFORMATION
  Report Type: Spontaneous
  Country: GB (occurrence: GB)
  Receive Date: 20220225
  Receipt Date: 20220726
  Transmission Date: 20221027
  Serious: Yes (Other)
  Sender: FDA-Public Use
  Company Number: None

PATIENT
  Age: 15 Year
  Sex: Female

DRUGS (6)
  1. ARIPIPRAZOLE [Interacting]
     Active Substance: ARIPIPRAZOLE
     Indication: Bipolar disorder
     Dosage: UNKNOWN
     Route: 065
  2. ABILIFY [Interacting]
     Active Substance: ARIPIPRAZOLE
     Indication: Bipolar disorder
     Dosage: UNKNOWN
     Route: 065
  3. LAMICTAL [Interacting]
     Active Substance: LAMOTRIGINE
     Indication: Bipolar disorder
     Dosage: 50 MILLIGRAM, 3 TIMES A DAY
     Route: 048
  4. NEXPLANON [Interacting]
     Active Substance: ETONOGESTREL
     Indication: Contraception
     Dosage: UNKNOWN
     Route: 058
  5. CETIRIZINE HYDROCHLORIDE [Interacting]
     Active Substance: CETIRIZINE HYDROCHLORIDE
     Indication: Seasonal allergy
     Dosage: UNK,ONCE A DAY (OCCASIONAL CETIRIZINE)
     Route: 048
  6. LAMOTRIGINE [Interacting]
     Active Substance: LAMOTRIGINE
     Indication: Bipolar disorder
     Dosage: 50 MILLIGRAM, 3 TIMES A DAY
     Route: 048

REACTIONS (9)
  - Abortion spontaneous [Unknown]
  - Unintended pregnancy [Unknown]
  - Pregnancy on contraceptive [Unknown]
  - Drug interaction [Unknown]
  - Intermenstrual bleeding [Unknown]
  - Exposure during pregnancy [Unknown]
  - Intermenstrual bleeding [Unknown]
  - Pregnancy with implant contraceptive [Unknown]
  - Maternal exposure during pregnancy [Unknown]
